FAERS Safety Report 25941166 (Version 1)
Quarter: 2025Q4

REPORT INFORMATION
  Report Type: Spontaneous
  Country: US (occurrence: US)
  Receive Date: 20251020
  Receipt Date: 20251020
  Transmission Date: 20260118
  Serious: No
  Sender: BIOMARIN
  Company Number: US-BIOMARINAP-US-2025-169483

PATIENT
  Sex: Female
  Weight: 25 kg

DRUGS (1)
  1. VOXZOGO [Suspect]
     Active Substance: VOSORITIDE
     Indication: Product used for unknown indication
     Dosage: UNK, QD
     Dates: start: 20240725

REACTIONS (2)
  - Dizziness [Unknown]
  - Blood pressure decreased [Unknown]
